FAERS Safety Report 10182721 (Version 1)
Quarter: 2014Q2

REPORT INFORMATION
  Report Type: Spontaneous
  Country: US (occurrence: None)
  Receive Date: 20140519
  Receipt Date: 20140519
  Transmission Date: 20141212
  Serious: Yes (Disabling)
  Sender: FDA-Public Use
  Company Number: None

PATIENT
  Age: 34 Year
  Sex: Female
  Weight: 77.11 kg

DRUGS (1)
  1. CIPRO [Suspect]
     Indication: URINARY TRACT INFECTION
     Dosage: 1 PILL
     Route: 048
     Dates: start: 20140514, end: 20140518

REACTIONS (12)
  - Pain in extremity [None]
  - Arthralgia [None]
  - Back pain [None]
  - Movement disorder [None]
  - Tendon pain [None]
  - Insomnia [None]
  - Hallucination [None]
  - Loss of consciousness [None]
  - Paraesthesia [None]
  - Hypoaesthesia [None]
  - Hypoaesthesia [None]
  - Myalgia [None]
